FAERS Safety Report 9176012 (Version 1)
Quarter: 2013Q1

REPORT INFORMATION
  Report Type: Other
  Country: FR (occurrence: FR)
  Receive Date: 20130320
  Receipt Date: 20130320
  Transmission Date: 20140127
  Serious: Yes (Other)
  Sender: FDA-Public Use
  Company Number: FR-WATSON-2013-04768

PATIENT
  Age: 60 Year
  Sex: Female

DRUGS (1)
  1. CARBOPLATIN (WATSON LABORATORIES) [Suspect]
     Indication: OVARIAN EPITHELIAL CANCER
     Dosage: 245 MG, UNKNOWN
     Route: 042
     Dates: start: 20121211, end: 20121211

REACTIONS (2)
  - Erythema [Recovered/Resolved]
  - Abdominal pain [Recovered/Resolved]
